FAERS Safety Report 12599310 (Version 1)
Quarter: 2016Q3

REPORT INFORMATION
  Report Type: Spontaneous
  Country: US (occurrence: US)
  Receive Date: 20160727
  Receipt Date: 20160727
  Transmission Date: 20161109
  Serious: No
  Sender: FDA-Public Use
  Company Number: US-SHIRE-US201608854

PATIENT
  Age: 2 Month
  Sex: Male

DRUGS (1)
  1. LIALDA [Suspect]
     Active Substance: MESALAMINE
     Indication: EXPOSURE DURING BREAST FEEDING
     Dosage: UNK, UNKNOWN
     Route: 048
     Dates: start: 2016

REACTIONS (2)
  - Candida infection [Not Recovered/Not Resolved]
  - Exposure during breast feeding [Not Recovered/Not Resolved]

NARRATIVE: CASE EVENT DATE: 2016
